FAERS Safety Report 9150539 (Version 1)
Quarter: 2013Q1

REPORT INFORMATION
  Report Type: Spontaneous
  Country: US (occurrence: US)
  Receive Date: 20130308
  Receipt Date: 20130308
  Transmission Date: 20140127
  Serious: No
  Sender: FDA-Public Use
  Company Number: US-ENDO PHARMACEUTICALS INC.-OPCR20121163

PATIENT
  Sex: Male

DRUGS (2)
  1. OPANA ER [Suspect]
     Indication: PROSTATE CANCER
     Route: 048
     Dates: start: 20120522
  2. OPANA ER [Concomitant]
     Indication: PROSTATE CANCER
     Route: 048
     Dates: start: 201109, end: 20120521

REACTIONS (5)
  - Feeling of body temperature change [None]
  - Nausea [Unknown]
  - Headache [Unknown]
  - Hyperhidrosis [Unknown]
  - Drug ineffective [Unknown]
